FAERS Safety Report 5281497-4 (Version None)
Quarter: 2007Q1

REPORT INFORMATION
  Report Type: 
  Country: None (occurrence: None)
  Receive Date: 20070330
  Receipt Date: 20070322
  Transmission Date: 20070707
  Serious: Yes (Death, Hospitalization)
  Sender: FDA-Public Use
  Company Number: PHEH2006US04760

PATIENT
  Age: 66 Year
  Sex: Female

DRUGS (10)
  1. EXJADE [Suspect]
     Indication: BLOOD IRON INCREASED
     Dosage: 20 MG/KG, QD
     Route: 048
     Dates: start: 20060101, end: 20060301
  2. ULTRAM [Concomitant]
     Dosage: 50 MG, TID PRN
  3. NEURONTIN [Concomitant]
     Dosage: 400 MG, BID
     Route: 048
  4. COREG [Concomitant]
     Dosage: 6.25 MG, BID
     Route: 048
  5. COZAAR [Concomitant]
     Dosage: 100 MG, QD
     Route: 048
  6. NIFEDIPINE [Concomitant]
     Dosage: 30 MG, QD
     Route: 048
  7. ASPIRIN [Concomitant]
     Dosage: 325 MG, QD
     Route: 048
  8. INSULIN [Concomitant]
     Dosage: 70/30 60U QAM, 30U QPM
     Route: 058
  9. LASIX [Concomitant]
     Dosage: 80 MG, QID
     Route: 048
  10. SPIRONOLACTONE [Concomitant]
     Dosage: 25 MG, QD
     Route: 048

REACTIONS (28)
  - ABDOMINAL DISTENSION [None]
  - ANURIA [None]
  - ARTERIOSCLEROSIS CORONARY ARTERY [None]
  - ASCITES [None]
  - BLOOD CREATININE INCREASED [None]
  - CARDIOMEGALY [None]
  - CHEST PAIN [None]
  - CONCOMITANT DISEASE PROGRESSION [None]
  - DISSEMINATED INTRAVASCULAR COAGULATION [None]
  - FLUID RETENTION [None]
  - HAEMATOCHEZIA [None]
  - HAEMATURIA [None]
  - HAEMOGLOBIN DECREASED [None]
  - HYPERKALAEMIA [None]
  - HYPOTENSION [None]
  - LACTIC ACIDOSIS [None]
  - MENTAL STATUS CHANGES [None]
  - METABOLIC ACIDOSIS [None]
  - MUSCULAR WEAKNESS [None]
  - MYOCARDIAL INFARCTION [None]
  - MYOCARDITIS SEPTIC [None]
  - PERICARDIAL EFFUSION [None]
  - PLEURAL EFFUSION [None]
  - RENAL FAILURE CHRONIC [None]
  - RESPIRATORY DISTRESS [None]
  - SEPSIS [None]
  - UNRESPONSIVE TO STIMULI [None]
  - URINARY BLADDER HAEMORRHAGE [None]
